FAERS Safety Report 7931101-9 (Version None)
Quarter: 2011Q4

REPORT INFORMATION
  Report Type: 
  Country: None (occurrence: None)
  Receive Date: 20111121
  Receipt Date: 20111107
  Transmission Date: 20120403
  Serious: Yes (Life-Threatening, Hospitalization)
  Sender: FDA-Public Use
  Company Number: US-ROCHE-1012211

PATIENT
  Age: 79 Year

DRUGS (5)
  1. HERCEPTIN [Suspect]
     Indication: BREAST CANCER METASTATIC
     Dosage: OVER 90 MIN ON DAY 1, WEEK 1 ONLY
     Route: 042
     Dates: start: 20040907
  2. HERCEPTIN [Suspect]
     Dosage: OVER 30 MIN ON DAY 1, 8, 15, AND 22 STARTING ON WEEK 2
     Route: 042
  3. EPOTHILONE NOS [Suspect]
     Indication: BREAST CANCER METASTATIC
     Dosage: OVER 1 HOUR ON DAYS 1, 8, AND 15
     Route: 042
     Dates: start: 20040907
  4. GLYBURIDE [Suspect]
     Indication: PRODUCT USED FOR UNKNOWN INDICATION
  5. CARBOPLATIN [Suspect]
     Indication: BREAST CANCER METASTATIC
     Dosage: OVER 1 HOUR ON DAYS 1, 8, AND 15
     Route: 042
     Dates: start: 20040907

REACTIONS (3)
  - GASTRIC HAEMORRHAGE [None]
  - HYPOKALAEMIA [None]
  - ANAEMIA [None]
